FAERS Safety Report 8576738-1 (Version None)
Quarter: 2012Q3

REPORT INFORMATION
  Report Type: 
  Country: None (occurrence: None)
  Receive Date: 20120807
  Receipt Date: 20120730
  Transmission Date: 20120928
  Serious: Yes (Hospitalization)
  Sender: FDA-Public Use
  Company Number: US-GENZYME-FABR-1002671

PATIENT
  Sex: Male

DRUGS (1)
  1. FABRAZYME [Suspect]
     Indication: FABRY'S DISEASE
     Dosage: 70 MG, Q2W
     Route: 042
     Dates: start: 20040401

REACTIONS (5)
  - DYSPNOEA [None]
  - ATRIAL FIBRILLATION [None]
  - ASTHENIA [None]
  - WEIGHT INCREASED [None]
  - ORTHOPNOEA [None]
